FAERS Safety Report 5682865-9 (Version None)
Quarter: 2008Q1

REPORT INFORMATION
  Report Type: 
  Country: None (occurrence: None)
  Receive Date: 20080327
  Receipt Date: 20080320
  Transmission Date: 20080703
  Serious: Yes (Disabling)
  Sender: FDA-Public Use
  Company Number: B0513287A

PATIENT
  Age: 35 Year
  Sex: Female
  Weight: 87 kg

DRUGS (2)
  1. AMOXICILLIN [Suspect]
     Dosage: 750MG PER DAY
     Route: 048
     Dates: start: 20080128, end: 20080204
  2. IBUPROFEN [Concomitant]
     Route: 048

REACTIONS (2)
  - NEPHRITIS INTERSTITIAL [None]
  - RENAL FAILURE ACUTE [None]
